FAERS Safety Report 5278151-1 (Version None)
Quarter: 2007Q1

REPORT INFORMATION
  Report Type: 
  Country: None (occurrence: None)
  Receive Date: 20070328
  Receipt Date: 20070323
  Transmission Date: 20070707
  Serious: Yes (Other)
  Sender: FDA-Public Use
  Company Number: US-SP-2007-00238

PATIENT
  Age: 64 Year
  Sex: Male
  Weight: 74 kg

DRUGS (6)
  1. THERACYS [Suspect]
     Indication: BLADDER CANCER
     Route: 043
     Dates: start: 20061228
  2. THERACYS [Suspect]
     Route: 043
     Dates: start: 20061228
  3. THERACYS [Suspect]
     Route: 043
     Dates: start: 20061228
  4. THERACYS [Suspect]
     Route: 043
     Dates: start: 20061228
  5. ATENOLOL [Concomitant]
  6. UNSPECIFIED ANTIBIOTIC [Concomitant]

REACTIONS (20)
  - ABDOMINAL PAIN LOWER [None]
  - ADVERSE DRUG REACTION [None]
  - ASTHENIA [None]
  - BACTERIA STOOL IDENTIFIED [None]
  - CHILLS [None]
  - CYSTITIS [None]
  - DIARRHOEA [None]
  - FAECES DISCOLOURED [None]
  - FATIGUE [None]
  - HAEMATURIA [None]
  - HAEMORRHAGE URINARY TRACT [None]
  - INCORRECT DOSE ADMINISTERED [None]
  - MICTURITION URGENCY [None]
  - MUSCLE SPASMS [None]
  - NAUSEA [None]
  - PSEUDOMEMBRANOUS COLITIS [None]
  - PYREXIA [None]
  - SEPSIS [None]
  - SKIN DISCOLOURATION [None]
  - TEMPERATURE INTOLERANCE [None]
